FAERS Safety Report 4879332-9 (Version None)
Quarter: 2006Q1

REPORT INFORMATION
  Report Type: 
  Country: None (occurrence: None)
  Receive Date: 20060112
  Receipt Date: 20000811
  Transmission Date: 20060701
  Serious: Yes (Hospitalization, Other)
  Sender: FDA-Public Use
  Company Number: US-MERCK-00081270

PATIENT
  Age: 78 Year
  Sex: Male
  Weight: 70 kg

DRUGS (8)
  1. VIOXX [Suspect]
     Indication: OSTEOARTHRITIS
     Route: 048
     Dates: start: 19990101, end: 20040901
  2. VIOXX [Suspect]
     Indication: ARTHRITIS
     Route: 048
     Dates: start: 19990101, end: 20040901
  3. PROSCAR [Concomitant]
     Route: 048
  4. LOPRESSOR [Concomitant]
     Route: 065
  5. FLOMAX (MORNIFLUMATE) [Concomitant]
     Route: 065
  6. VIOXX [Suspect]
     Route: 048
     Dates: start: 19990101, end: 20040901
  7. VIOXX [Suspect]
     Route: 048
     Dates: start: 19990101, end: 20040901
  8. CASODEX [Concomitant]
     Route: 065

REACTIONS (34)
  - ANXIETY [None]
  - AORTIC VALVE DISEASE [None]
  - AORTIC VALVE INCOMPETENCE [None]
  - AORTIC VALVE STENOSIS [None]
  - ARTERIOSCLEROSIS CORONARY ARTERY [None]
  - BACK PAIN [None]
  - BLOOD HOMOCYSTEINE INCREASED [None]
  - CARDIAC FAILURE CONGESTIVE [None]
  - CARDIOMEGALY [None]
  - CHEST PAIN [None]
  - CORONARY ARTERY DISEASE [None]
  - CORONARY ARTERY STENOSIS [None]
  - COUGH [None]
  - DYSSTASIA [None]
  - ELECTROCARDIOGRAM T WAVE INVERSION [None]
  - FALL [None]
  - FATIGUE [None]
  - FLATULENCE [None]
  - GASTROOESOPHAGEAL REFLUX DISEASE [None]
  - HYPERHIDROSIS [None]
  - HYPERSENSITIVITY [None]
  - INJURY [None]
  - MITRAL VALVE DISEASE [None]
  - MITRAL VALVE INCOMPETENCE [None]
  - MYOCARDIAL INFARCTION [None]
  - PALPITATIONS [None]
  - POST-TRAUMATIC PAIN [None]
  - PYREXIA [None]
  - RASH [None]
  - RENAL DISORDER [None]
  - SINUS BRADYCARDIA [None]
  - URTICARIA [None]
  - VENTRICULAR HYPERTROPHY [None]
  - WRIST FRACTURE [None]
